FAERS Safety Report 6240170-6 (Version None)
Quarter: 2009Q2

REPORT INFORMATION
  Report Type: 
  Country: None (occurrence: None)
  Receive Date: 20090623
  Receipt Date: 20090512
  Transmission Date: 20091009
  Serious: No
  Sender: FDA-Public Use
  Company Number: JP-ASTRAZENECA-2009SE02842

PATIENT
  Age: 72 Year
  Sex: Female

DRUGS (2)
  1. QUETIAPINE FUMARATE [Suspect]
     Route: 048
     Dates: start: 20080207, end: 20080213
  2. QUETIAPINE FUMARATE [Suspect]
     Route: 048
     Dates: start: 20080214, end: 20080218

REACTIONS (1)
  - THROMBOCYTOPENIA [None]
